FAERS Safety Report 14955182 (Version 1)
Quarter: 2018Q2

REPORT INFORMATION
  Report Type: Spontaneous
  Country: US (occurrence: US)
  Receive Date: 20180531
  Receipt Date: 20180531
  Transmission Date: 20180711
  Serious: Yes (Life-Threatening, Hospitalization, Other)
  Sender: FDA-Public Use
  Company Number: US-BRISTOL-MYERS SQUIBB COMPANY-BMS-2018-047142

PATIENT
  Age: 68 Year
  Sex: Female
  Weight: 75.74 kg

DRUGS (2)
  1. COUMADIN [Suspect]
     Active Substance: WARFARIN SODIUM
     Indication: PRODUCT USED FOR UNKNOWN INDICATION
     Route: 065
  2. TIKOSYN [Suspect]
     Active Substance: DOFETILIDE
     Indication: ATRIAL FIBRILLATION
     Dosage: 0.125 MG, BID
     Route: 048
     Dates: start: 20180124

REACTIONS (6)
  - Cardiac disorder [Unknown]
  - Atrial fibrillation [Recovering/Resolving]
  - Blood pressure decreased [Recovered/Resolved]
  - Haematoma [Recovering/Resolving]
  - Tachycardia [Recovering/Resolving]
  - Bradycardia [Recovering/Resolving]

NARRATIVE: CASE EVENT DATE: 20180501
